FAERS Safety Report 19201166 (Version 3)
Quarter: 2021Q2

REPORT INFORMATION
  Report Type: Spontaneous
  Country: US (occurrence: US)
  Receive Date: 20210430
  Receipt Date: 20210505
  Transmission Date: 20210717
  Serious: Yes (Other)
  Sender: FDA-Public Use
  Company Number: US-SA-2021SA131405

PATIENT
  Age: 77 Year
  Sex: Female

DRUGS (2)
  1. CHILDREN^S ALLEGRA ALLERGY [Suspect]
     Active Substance: FEXOFENADINE HYDROCHLORIDE
     Indication: SINUSITIS
     Dosage: DRUG STRUCTURE DOSAGE : 30 MG DRUG INTERVAL DOSAGE : ONCE
     Route: 048
     Dates: start: 20210418, end: 20210418
  2. CHILDREN^S ALLEGRA ALLERGY [Suspect]
     Active Substance: FEXOFENADINE HYDROCHLORIDE
     Indication: 11-BETA-HYDROXYLASE DEFICIENCY

REACTIONS (6)
  - Fear [Unknown]
  - Off label use [Unknown]
  - Dysgeusia [Unknown]
  - Choking [Unknown]
  - Cough [Unknown]
  - Product solubility abnormal [Unknown]

NARRATIVE: CASE EVENT DATE: 20210418
